FAERS Safety Report 5734258-3 (Version None)
Quarter: 2008Q2

REPORT INFORMATION
  Report Type: 
  Country: None (occurrence: None)
  Receive Date: 20080512
  Receipt Date: 20080501
  Transmission Date: 20081010
  Serious: Yes (Death)
  Sender: FDA-Public Use
  Company Number: US-JNJFOC-20071104970

PATIENT
  Sex: Female
  Weight: 62.14 kg

DRUGS (20)
  1. FENTANYL-100 [Suspect]
     Route: 062
  2. FENTANYL-100 [Suspect]
     Indication: PAIN
     Route: 062
  3. DARVOCET-N 100 [Concomitant]
  4. RIFAMPIN [Concomitant]
  5. FORADIL [Concomitant]
  6. WELLBUTRIN XL [Concomitant]
  7. PHENERGAN [Concomitant]
  8. DEXAMETHASONE [Concomitant]
  9. TRAZODONE HCL [Concomitant]
  10. HYDROXYZINE PAMOATE [Concomitant]
  11. TRIAMTERENE AND HYDROCHLOROTHIAZIDE [Concomitant]
  12. LEXAPRO [Concomitant]
  13. MINOCYCLINE HCL [Concomitant]
  14. CLINDAMYCIN HCL [Concomitant]
  15. PROTONIX [Concomitant]
  16. ZOFRAN [Concomitant]
  17. FLAXSEED [Concomitant]
  18. SOY [Concomitant]
  19. VITAMIN B6 [Concomitant]
  20. BLACK COHOSH [Concomitant]

REACTIONS (2)
  - DRUG TOXICITY [None]
  - PHARMACEUTICAL PRODUCT COMPLAINT [None]
